FAERS Safety Report 15216786 (Version 2)
Quarter: 2018Q3

REPORT INFORMATION
  Report Type: Spontaneous
  Country: US (occurrence: US)
  Receive Date: 20180730
  Receipt Date: 20180808
  Transmission Date: 20181010
  Serious: Yes (Other)
  Sender: FDA-Public Use
  Company Number: US-GE HEALTHCARE LIFE SCIENCES-2018CSU002927

PATIENT
  Age: 43 Year
  Sex: Female
  Weight: 66.67 kg

DRUGS (3)
  1. TAMOXIFEN [Concomitant]
     Active Substance: TAMOXIFEN
     Dosage: 20 MG, QD
     Route: 048
  2. PEPPERMINT OIL [Concomitant]
     Active Substance: PEPPERMINT OIL
     Dosage: 50 MG, DAILY
     Route: 048
  3. OMNIPAQUE [Suspect]
     Active Substance: IOHEXOL
     Indication: BREAST CANCER
     Dosage: 100 ML, SINGLE
     Route: 042
     Dates: start: 20180725, end: 20180725

REACTIONS (1)
  - Contrast media reaction [Recovered/Resolved]

NARRATIVE: CASE EVENT DATE: 20180725
